FAERS Safety Report 13175386 (Version 2)
Quarter: 2017Q1

REPORT INFORMATION
  Report Type: Report from Study
  Country: AR (occurrence: AR)
  Receive Date: 20170201
  Receipt Date: 20170321
  Transmission Date: 20170428
  Serious: Yes (Death, Hospitalization)
  Sender: FDA-Public Use
  Company Number: AR-R-PHARM US LLC-2017RPM00001

PATIENT
  Age: 44 Year
  Sex: Female

DRUGS (2)
  1. IXEMPRA [Suspect]
     Active Substance: IXABEPILONE
     Indication: BREAST CANCER
     Dosage: 60 MG EVERY 21 DAYS
     Route: 042
     Dates: start: 20161206
  2. IXEMPRA [Suspect]
     Active Substance: IXABEPILONE
     Dosage: 60 MG EVERY 21 DAYS
     Route: 042
     Dates: start: 20161206

REACTIONS (3)
  - Seizure [Unknown]
  - Brain neoplasm [Unknown]
  - Death [Fatal]

NARRATIVE: CASE EVENT DATE: 20170113
